FAERS Safety Report 8773872 (Version 2)
Quarter: 2012Q4

REPORT INFORMATION
  Report Type: 
  Country: US (occurrence: US)
  Receive Date: 20120907
  Receipt Date: 20121206
  Transmission Date: 20130627
  Serious: Yes (Hospitalization, Other)
  Sender: FDA-Public Use
  Company Number: US-ROCHE-1107794

PATIENT
  Age: 68 Year
  Sex: Female

DRUGS (1)
  1. AVASTIN [Suspect]
     Indication: PRODUCT USED FOR UNKNOWN INDICATION
     Dosage: Dose: 1.25 mg/0.05 ml
     Route: 050

REACTIONS (4)
  - Endophthalmitis [Unknown]
  - Retinal detachment [Unknown]
  - Eye abscess [Unknown]
  - Cataract [Unknown]
